FAERS Safety Report 9586148 (Version 1)
Quarter: 2013Q4

REPORT INFORMATION
  Report Type: Spontaneous
  Country: US (occurrence: US)
  Receive Date: 20131003
  Receipt Date: 20131003
  Transmission Date: 20140711
  Serious: Yes (Other)
  Sender: FDA-Public Use
  Company Number: US-BAYER-2013-119411

PATIENT
  Age: 19 Year
  Sex: Female
  Weight: 54.88 kg

DRUGS (20)
  1. YASMIN [Suspect]
  2. HYDROCODONE W/ACETAMINOPHEN [Concomitant]
     Dosage: 7.5-750 MG
  3. AMOXICILLIN [Concomitant]
     Indication: WISDOM TEETH REMOVAL
     Dosage: 500 MG, UNK
  4. DECADRON [DEXAMETHASONE] [Concomitant]
     Indication: WISDOM TEETH REMOVAL
     Dosage: 4 MG, UNK
  5. MORPHINE [Concomitant]
     Indication: PROCEDURAL PAIN
     Dosage: 4 MG, UNK
     Route: 058
     Dates: start: 20080618
  6. ENDOCET [Concomitant]
     Indication: PAIN
     Dosage: 5-325 MG
  7. IBUPROFEN [IBUPROFEN] [Concomitant]
     Indication: PAIN
     Dosage: 600 MG, UNK
     Dates: start: 20080618
  8. CIPROFLOXACIN [Concomitant]
     Dosage: 500 MG, UNK
     Dates: start: 20080708
  9. GENTAMICIN [Concomitant]
     Dosage: 80 MG, UNK
     Route: 042
     Dates: start: 20080716
  10. MIDAZOLAM [Concomitant]
     Dosage: 1 MG, UNK
     Route: 042
     Dates: start: 20080716
  11. GLYCOPYRROLATE [Concomitant]
     Dosage: 0.2 MG, UNK
     Route: 042
     Dates: start: 20080716
  12. LIDOCAINE [Concomitant]
     Dosage: 1 %, UNK
     Route: 058
     Dates: start: 20080716
  13. IOHEXOL [Concomitant]
     Dosage: 50 ML, UNK
     Route: 042
     Dates: start: 20080716
  14. FENTANYL [Concomitant]
     Dosage: 25 MCG
     Route: 042
     Dates: start: 20080716
  15. HYDROMORPHONE [Concomitant]
     Dosage: 0.2 MG, UNK
     Route: 042
     Dates: start: 20080716
  16. HYDROMORPHONE [Concomitant]
     Dosage: 0.4 MG, UNK
     Route: 042
     Dates: start: 20080716
  17. HYDROMORPHONE [Concomitant]
     Dosage: 1 MG, UNK
     Route: 042
     Dates: start: 20080716
  18. VICODIN [Concomitant]
     Dosage: 5-500 MG
     Route: 048
     Dates: start: 20080716
  19. ONDANSETRON [Concomitant]
     Dosage: 1 MG, UNK
     Route: 042
     Dates: start: 20080716
  20. MEPERIDINE [Concomitant]
     Dosage: 12.5 MG, UNK
     Route: 042
     Dates: start: 20080716

REACTIONS (1)
  - Deep vein thrombosis [Recovered/Resolved]
